FAERS Safety Report 10168881 (Version 1)
Quarter: 2014Q2

REPORT INFORMATION
  Report Type: Spontaneous
  Country: US (occurrence: US)
  Receive Date: 20140513
  Receipt Date: 20140513
  Transmission Date: 20141212
  Serious: Yes (Other)
  Sender: FDA-Public Use
  Company Number: US-ASTRAZENECA-2014SE30579

PATIENT
  Age: 48 Year
  Sex: Female

DRUGS (11)
  1. BUDESONIDE [Suspect]
     Indication: CROHN^S DISEASE
     Route: 048
  2. VORICONAZOLE [Interacting]
     Indication: OESOPHAGEAL CANDIDIASIS
     Route: 048
  3. VORICONAZOLE [Interacting]
     Indication: OESOPHAGEAL CANDIDIASIS
     Route: 048
  4. FAMOTIDINE [Concomitant]
     Route: 065
  5. MIRTAZAPINE [Concomitant]
     Route: 065
  6. HYDROCODONE-ACETAMINOPHEN [Concomitant]
     Route: 065
  7. LOSARTAN [Concomitant]
     Route: 065
  8. CALCIUM CARBONATE [Concomitant]
     Route: 065
  9. SODIUM CITRATE [Concomitant]
     Route: 065
  10. CITRIC ACID [Concomitant]
     Route: 065
  11. NYSTATIN [Concomitant]
     Indication: OESOPHAGEAL CANDIDIASIS
     Dosage: 500,000 UNITS/5 ML SOLUTION AS NEEDED.
     Route: 048

REACTIONS (2)
  - Drug interaction [Unknown]
  - Cushing^s syndrome [Recovering/Resolving]
